FAERS Safety Report 8183264-0 (Version None)
Quarter: 2012Q1

REPORT INFORMATION
  Report Type: 
  Country: None (occurrence: None)
  Receive Date: 20120305
  Receipt Date: 20120228
  Transmission Date: 20120608
  Serious: Yes (Other)
  Sender: FDA-Public Use
  Company Number: IL-SANOFI-AVENTIS-2012SA009894

PATIENT
  Age: 60 Year
  Sex: Male

DRUGS (2)
  1. DRONEDARONE HCL [Suspect]
     Route: 048
  2. BISOPROLOL FUMARATE [Concomitant]
     Indication: HYPERTENSION

REACTIONS (2)
  - HEPATIC ENZYME INCREASED [None]
  - MIXED LIVER INJURY [None]
